FAERS Safety Report 7819584-6 (Version None)
Quarter: 2011Q4

REPORT INFORMATION
  Report Type: 
  Country: None (occurrence: None)
  Receive Date: 20111018
  Receipt Date: 20111018
  Transmission Date: 20120403
  Serious: Yes (Life-Threatening, Hospitalization)
  Sender: FDA-Public Use
  Company Number: None

PATIENT
  Age: 60 Year
  Sex: Female
  Weight: 36.287 kg

DRUGS (2)
  1. MYLAN FENTANYL TRANSDERMAL SYSTE [Suspect]
     Indication: PAIN
     Dosage: 50 MCG/HR
     Route: 062
     Dates: start: 20111005, end: 20111006
  2. MYLAN FENTANYL TRANSDERMAL SYSTE [Concomitant]
     Dosage: 25 MCG/HR
     Route: 062
     Dates: start: 20111011, end: 20111012

REACTIONS (2)
  - OVERDOSE [None]
  - SEDATION [None]
